FAERS Safety Report 8511045-4 (Version None)
Quarter: 2012Q3

REPORT INFORMATION
  Report Type: 
  Country: None (occurrence: None)
  Receive Date: 20120716
  Receipt Date: 20120707
  Transmission Date: 20120928
  Serious: Yes (Other)
  Sender: FDA-Public Use
  Company Number: US-SANOFI-AVENTIS-2012SA048911

PATIENT
  Age: 72 Year
  Sex: Female

DRUGS (4)
  1. LANTUS [Suspect]
     Dosage: DOSE:42 UNIT(S)
     Route: 058
     Dates: start: 20110101
  2. NOVOLOG [Concomitant]
  3. SOLOSTAR [Suspect]
     Dates: start: 20110101
  4. COUMADIN [Concomitant]

REACTIONS (3)
  - DEVICE ISSUE [None]
  - DEAFNESS [None]
  - INJECTION SITE HAEMORRHAGE [None]
